FAERS Safety Report 24382965 (Version 1)
Quarter: 2024Q4

REPORT INFORMATION
  Report Type: Spontaneous
  Country: DE (occurrence: DE)
  Receive Date: 20241001
  Receipt Date: 20241001
  Transmission Date: 20250114
  Serious: Yes (Hospitalization, Other)
  Sender: JOHNSON AND JOHNSON
  Company Number: DE-BAYER-2024A138538

PATIENT
  Age: 66 Year
  Sex: Female

DRUGS (1)
  1. RIVAROXABAN [Suspect]
     Active Substance: RIVAROXABAN
     Indication: Thrombosis
     Dosage: UNK
     Route: 048
     Dates: end: 20240926

REACTIONS (5)
  - Epilepsy [Unknown]
  - COVID-19 [Unknown]
  - Pyrexia [Unknown]
  - Iron deficiency [Unknown]
  - Abdominal pain [Unknown]
